FAERS Safety Report 8176700-7 (Version None)
Quarter: 2012Q1

REPORT INFORMATION
  Report Type: 
  Country: None (occurrence: None)
  Receive Date: 20120301
  Receipt Date: 20120217
  Transmission Date: 20120608
  Serious: Yes (Hospitalization)
  Sender: FDA-Public Use
  Company Number: US-ELI_LILLY_AND_COMPANY-US201202006445

PATIENT
  Sex: Male

DRUGS (12)
  1. ZYPREXA [Suspect]
     Dosage: 10 MG, UNK
     Dates: start: 20120210
  2. FISH OIL [Concomitant]
  3. INVEGA [Concomitant]
  4. OMEPRAZOLE [Concomitant]
  5. ZYPREXA [Suspect]
     Indication: SCHIZOPHRENIA, PARANOID TYPE
     Dosage: 5 MG, UNK
     Dates: start: 20120203, end: 20120209
  6. ZYPREXA ZYDIS [Suspect]
     Indication: SCHIZOPHRENIA, PARANOID TYPE
     Dosage: 10 MG, BID
     Dates: start: 20120203, end: 20120208
  7. LAMICTAL [Concomitant]
  8. ZYPREXA [Suspect]
  9. SIMVASTATIN [Concomitant]
  10. ZYPREXA ZYDIS [Suspect]
     Dosage: 40 MG, EACH EVENING
  11. CLONAZEPAM [Concomitant]
  12. METFORMIN HCL [Concomitant]

REACTIONS (3)
  - HOSPITALISATION [None]
  - DRUG INEFFECTIVE [None]
  - OVERDOSE [None]
